FAERS Safety Report 7511411-X (Version None)
Quarter: 2011Q2

REPORT INFORMATION
  Report Type: 
  Country: None (occurrence: None)
  Receive Date: 20110531
  Receipt Date: 20110517
  Transmission Date: 20111010
  Serious: Yes (Hospitalization, Other)
  Sender: FDA-Public Use
  Company Number: PHHY2011BE39527

PATIENT
  Age: 62 Year
  Sex: Female

DRUGS (3)
  1. ACETAMINOPHEN [Concomitant]
  2. ZOLEDRONIC ACID [Suspect]
     Indication: OSTEOPOROSIS POSTMENOPAUSAL
     Dosage: 5 MG
     Route: 042
     Dates: start: 20101102
  3. ARTHROTEC [Concomitant]

REACTIONS (4)
  - JOINT SWELLING [None]
  - LEUKAEMIC INFILTRATION [None]
  - OSTEONECROSIS [None]
  - MUSCULOSKELETAL PAIN [None]
